FAERS Safety Report 8556361-5 (Version None)
Quarter: 2012Q3

REPORT INFORMATION
  Report Type: 
  Country: None (occurrence: None)
  Receive Date: 20120801
  Receipt Date: 20120724
  Transmission Date: 20120928
  Serious: Yes (Hospitalization, Other)
  Sender: FDA-Public Use
  Company Number: PHEH2012US011718

PATIENT
  Sex: Female
  Weight: 67.12 kg

DRUGS (17)
  1. CELEBREX [Concomitant]
     Dosage: 100 MG, UNK
  2. ASPIRIN [Concomitant]
     Dosage: 81 MG, DAILY
     Route: 048
  3. CALCIUM WITH VITAMIN D [Concomitant]
  4. ICAPS PLUS [Concomitant]
     Indication: IRON OVERLOAD
     Dosage: 1 DF, DAILY
  5. EXJADE [Suspect]
     Indication: IRON OVERLOAD
     Dosage: 500 MG, QD
     Route: 048
     Dates: start: 20120501
  6. HYDROCHLOROTHIAZIDE [Concomitant]
     Dosage: 12.5 MG, DAILY
     Route: 048
  7. PREDNISONE [Concomitant]
     Route: 048
  8. CALCIUM CARBONATE [Concomitant]
     Dosage: 600 MG, DAILY
     Route: 048
  9. POTASSIUM [Concomitant]
     Dosage: 75 MG, UNK
  10. H2 BLOCKER [Concomitant]
     Route: 048
  11. EXJADE [Suspect]
     Indication: ANAEMIA HAEMOLYTIC AUTOIMMUNE
  12. RITUXAN [Concomitant]
  13. CELEBREX [Concomitant]
     Dosage: 200 MG, DAILY
     Route: 048
  14. FOLIC ACID [Concomitant]
     Dosage: 1 MG, DAILY
     Route: 048
  15. TRIAMTERENE AND HYDROCHLOROTHIAZIDE [Concomitant]
     Dosage: 1 DF (25-50 MG)
  16. KLONOPIN [Concomitant]
     Dosage: 0.5 MG, QHS
     Route: 048
  17. POTASSIUM [Concomitant]
     Dosage: 10 MEQ, DAILY
     Route: 048

REACTIONS (19)
  - GLOBULINS DECREASED [None]
  - TACHYCARDIA [None]
  - WHITE BLOOD CELL COUNT DECREASED [None]
  - BLOOD LACTATE DEHYDROGENASE INCREASED [None]
  - ATRIAL FIBRILLATION [None]
  - ANAEMIA [None]
  - PALPITATIONS [None]
  - DIARRHOEA [None]
  - DYSLIPIDAEMIA [None]
  - HAEMATOCRIT DECREASED [None]
  - HAEMOGLOBIN DECREASED [None]
  - HAIRY CELL LEUKAEMIA [None]
  - PROTEIN TOTAL DECREASED [None]
  - DYSPNOEA [None]
  - MUSCLE TIGHTNESS [None]
  - BLOOD BILIRUBIN INCREASED [None]
  - HEART RATE INCREASED [None]
  - DIZZINESS [None]
  - RED BLOOD CELL COUNT DECREASED [None]
